FAERS Safety Report 24809452 (Version 1)
Quarter: 2025Q1

REPORT INFORMATION
  Report Type: Spontaneous
  Country: US (occurrence: US)
  Receive Date: 20250106
  Receipt Date: 20250106
  Transmission Date: 20250409
  Serious: Yes (Life-Threatening, Hospitalization, Other)
  Sender: COSETTE PHARMACEUTICALS INC
  Company Number: US-COSETTE-CP2024US000465

PATIENT
  Age: 63 Year
  Sex: Female

DRUGS (5)
  1. CHLORTHALIDONE [Suspect]
     Active Substance: CHLORTHALIDONE
     Indication: Gastrooesophageal reflux disease
     Route: 065
  2. CALCIUM CITRATE [Suspect]
     Active Substance: CALCIUM CITRATE
     Indication: Gastrooesophageal reflux disease
     Route: 065
  3. CHOLECALCIFEROL [Suspect]
     Active Substance: CHOLECALCIFEROL
     Indication: Gastrooesophageal reflux disease
     Route: 065
  4. CALCITRIOL [Suspect]
     Active Substance: CALCITRIOL
     Indication: Gastrooesophageal reflux disease
     Route: 065
  5. TUMS [Suspect]
     Active Substance: CALCIUM CARBONATE
     Indication: Gastrooesophageal reflux disease
     Route: 065

REACTIONS (5)
  - Milk-alkali syndrome [Recovering/Resolving]
  - Hypercalcaemia [Recovering/Resolving]
  - Renal tubular necrosis [Recovering/Resolving]
  - Blood parathyroid hormone decreased [Recovering/Resolving]
  - Product use in unapproved indication [Unknown]
